FAERS Safety Report 21556802 (Version 1)
Quarter: 2022Q4

REPORT INFORMATION
  Report Type: Report from Study
  Country: US (occurrence: US)
  Receive Date: 20221104
  Receipt Date: 20221104
  Transmission Date: 20230112
  Serious: No
  Sender: FDA-Public Use
  Company Number: US-002147023-NVSC2022US249228

PATIENT
  Sex: Female

DRUGS (1)
  1. KISQALI [Suspect]
     Active Substance: RIBOCICLIB
     Indication: Product used for unknown indication
     Dosage: UNK
     Route: 065

REACTIONS (8)
  - Malaise [Unknown]
  - Influenza like illness [Unknown]
  - Limb discomfort [Unknown]
  - Chest discomfort [Unknown]
  - Feeling abnormal [Unknown]
  - Toothache [Unknown]
  - Pruritus [Unknown]
  - Fatigue [Unknown]
